FAERS Safety Report 8213557-X (Version None)
Quarter: 2012Q1

REPORT INFORMATION
  Report Type: 
  Country: None (occurrence: None)
  Receive Date: 20120315
  Receipt Date: 20120312
  Transmission Date: 20120608
  Serious: Yes (Death, Hospitalization)
  Sender: FDA-Public Use
  Company Number: US-ASTRAZENECA-2011SE41545

PATIENT
  Age: 61 Year
  Sex: Female

DRUGS (54)
  1. HYZAAR [Concomitant]
  2. RAZADYNE [Concomitant]
     Indication: MEMORY IMPAIRMENT
  3. LUSPIRONE HCL [Concomitant]
  4. PLAUIX [Concomitant]
     Indication: CARDIAC DISORDER
  5. ISOSORBIDE MONONITRATE [Concomitant]
  6. EUISTA [Concomitant]
     Indication: MENOPAUSE
  7. AMBIEN [Concomitant]
     Indication: SLEEP DISORDER
  8. WARFARIN SODIUM [Concomitant]
  9. ENALAPRIL MALEATE [Concomitant]
  10. DIOUAN [Concomitant]
  11. METOLAZONE [Concomitant]
  12. POTASSIUM CL [Concomitant]
  13. ALLOPREERINOL [Concomitant]
     Indication: GOUT
  14. PERMETHRIN [Concomitant]
     Dosage: 5%
  15. PROMETHAZINE [Concomitant]
  16. ALPRAZOLAM [Concomitant]
  17. LOOASTATIN [Concomitant]
  18. FLUTICASONE [Concomitant]
     Dosage: 50 MCG
  19. PREDNISONE TAB [Concomitant]
  20. AZITHORMYCIN [Concomitant]
  21. CEFADROXIL [Concomitant]
  22. AMIODARONE HCL [Concomitant]
  23. ALTACE [Concomitant]
  24. NEXIUM [Suspect]
     Indication: GASTROOESOPHAGEAL REFLUX DISEASE
     Route: 048
  25. RANITIDINE [Concomitant]
     Route: 065
     Dates: start: 20090401, end: 20110901
  26. HUMULINE N [Concomitant]
     Indication: DIABETES MELLITUS
     Dosage: 100 UNITS
  27. CEFPROZIL [Concomitant]
  28. FUROSEMIDE [Concomitant]
  29. TEMAZEPAM [Concomitant]
  30. ATENOLOL AND CHLORTHALIDONE [Concomitant]
     Indication: APOLIPOPROTEIN ABNORMAL
  31. CLINDAMYCIN HCL [Concomitant]
  32. NITROGLYCERIN [Concomitant]
     Indication: CARDIAC DISORDER
  33. ZOLPIDEM TARTRATE [Concomitant]
  34. NOVOLOG [Concomitant]
     Dosage: 100 UNITS
  35. LANTUS [Concomitant]
     Indication: DIABETES MELLITUS
     Dosage: 100 UNITS
  36. CORG [Concomitant]
  37. NEXIUM [Suspect]
     Indication: ABDOMINAL PAIN UPPER
     Route: 048
  38. NEXIUM [Suspect]
     Route: 048
     Dates: start: 20030501, end: 20090401
  39. GLIMEPIRIDE [Concomitant]
  40. SPIRIUA [Concomitant]
     Dosage: 18 MCG
  41. OUIDE [Concomitant]
     Dosage: 0.5%
  42. CHERATUSSIN AC [Concomitant]
  43. PRAUASTATIN SODIUM [Concomitant]
  44. SPIRONOLACTONE [Concomitant]
  45. FEXOFENADINE [Concomitant]
  46. MYTUSSIN AC [Concomitant]
  47. HUMULIN R [Concomitant]
     Indication: DIABETES MELLITUS
     Dosage: 100 UNITS
  48. AMITRIPTYLINE HCL [Concomitant]
  49. NEXIUM [Suspect]
     Route: 048
     Dates: start: 20030501, end: 20090401
  50. LYRICA [Concomitant]
  51. CARISOPRODOL [Concomitant]
  52. COZZAAR [Concomitant]
  53. HYDROCOONE/APAP [Concomitant]
     Indication: PAIN
     Dosage: 7.5/750
  54. XOPENEX [Concomitant]
     Dosage: 0.63/3ML

REACTIONS (9)
  - CORONARY ARTERY DISEASE [None]
  - RENAL FAILURE CHRONIC [None]
  - LOWER LIMB FRACTURE [None]
  - CARDIAC FAILURE CONGESTIVE [None]
  - FRACTURE [None]
  - UPPER LIMB FRACTURE [None]
  - TYPE 2 DIABETES MELLITUS [None]
  - OSTEOPOROSIS [None]
  - RIB FRACTURE [None]
